FAERS Safety Report 5937972-X (Version None)
Quarter: 2008Q4

REPORT INFORMATION
  Report Type: 
  Country: None (occurrence: None)
  Receive Date: 20081031
  Receipt Date: 20081021
  Transmission Date: 20090506
  Serious: Yes (Death, Other)
  Sender: FDA-Public Use
  Company Number: FR-PFIZER INC-2008075614

PATIENT
  Sex: Female
  Weight: 92 kg

DRUGS (8)
  1. TAHOR [Suspect]
     Indication: CORONARY ARTERY DISEASE
     Route: 048
     Dates: start: 20080125
  2. TAHOR [Suspect]
     Indication: HYPERCHOLESTEROLAEMIA
  3. INSULIN GLARGINE [Concomitant]
     Dosage: DAILY DOSE:76I.U.
     Route: 058
     Dates: start: 20070605
  4. PAROXETINE HCL [Concomitant]
     Dosage: DAILY DOSE:20MG
     Route: 048
     Dates: start: 20000822
  5. BISOPROLOL FUMARATE [Concomitant]
     Dosage: DAILY DOSE:10MG
     Route: 048
     Dates: start: 20030909
  6. ALL OTHER THERAPEUTIC PRODUCTS [Concomitant]
  7. REPAGLINIDE [Concomitant]
     Route: 048
     Dates: start: 20080724
  8. BIPRETERAX [Concomitant]
     Dosage: TEXT:4MG/1.25MG DAILY
     Route: 048
     Dates: start: 20080125

REACTIONS (9)
  - ANOREXIA [None]
  - ARTHRALGIA [None]
  - BLOOD CHOLESTEROL INCREASED [None]
  - BLOOD PRESSURE INCREASED [None]
  - CONSTIPATION [None]
  - CORONARY ARTERY THROMBOSIS [None]
  - DRUG INEFFECTIVE [None]
  - FATIGUE [None]
  - SYNCOPE [None]
